FAERS Safety Report 17052977 (Version 2)
Quarter: 2019Q4

REPORT INFORMATION
  Report Type: Spontaneous
  Country: JP (occurrence: JP)
  Receive Date: 20191120
  Receipt Date: 20191217
  Transmission Date: 20200122
  Serious: Yes (Hospitalization)
  Sender: FDA-Public Use
  Company Number: JP-JNJFOC-20191118489

PATIENT
  Age: 82 Year
  Sex: Male

DRUGS (5)
  1. ARTIST [Concomitant]
     Active Substance: CARVEDILOL
  2. SUNRYTHM [Concomitant]
     Active Substance: PILSICAINIDE HYDROCHLORIDE
     Indication: ATRIAL FIBRILLATION
     Route: 041
  3. OLMETEC [Concomitant]
     Active Substance: OLMESARTAN MEDOXOMIL
  4. PLETAAL [Concomitant]
     Active Substance: CILOSTAZOL
  5. RIVAROXABAN [Suspect]
     Active Substance: RIVAROXABAN
     Indication: ATRIAL FIBRILLATION
     Dosage: ONLY ONCE IN THE MORNING
     Route: 048

REACTIONS (1)
  - Cerebral infarction [Unknown]
